FAERS Safety Report 9191415 (Version 1)
Quarter: 2013Q1

REPORT INFORMATION
  Report Type: Spontaneous
  Country: US (occurrence: US)
  Receive Date: 20130326
  Receipt Date: 20130326
  Transmission Date: 20140127
  Serious: Yes (Other)
  Sender: FDA-Public Use
  Company Number: US-PFIZER INC-2013094048

PATIENT
  Age: 51 Year
  Sex: Male
  Weight: 158.73 kg

DRUGS (3)
  1. VIAGRA [Suspect]
     Indication: ERECTILE DYSFUNCTION
     Dosage: 50 MG, AS NEEDED
     Route: 048
     Dates: start: 2000
  2. VIAGRA [Suspect]
     Dosage: 100 MG, AS NEEDED
     Route: 048
  3. COUMADINE [Concomitant]
     Dosage: UNK

REACTIONS (3)
  - Factor V Leiden mutation [Unknown]
  - Prostatic disorder [Unknown]
  - Drug ineffective [Unknown]
